FAERS Safety Report 8273277-2 (Version None)
Quarter: 2012Q2

REPORT INFORMATION
  Report Type: 
  Country: None (occurrence: None)
  Receive Date: 20120411
  Receipt Date: 20120405
  Transmission Date: 20120825
  Serious: Yes (Other)
  Sender: FDA-Public Use
  Company Number: US-PFIZER INC-2012086740

PATIENT
  Sex: Female
  Weight: 95.238 kg

DRUGS (5)
  1. REVATIO [Suspect]
     Indication: RAYNAUD'S PHENOMENON
  2. PREDNISONE TAB [Suspect]
     Dosage: 10 MG, DAILY
  3. REVATIO [Suspect]
     Indication: PULMONARY HYPERTENSION
     Dosage: 20 MG, 3X/DAY
     Dates: end: 20120402
  4. REVATIO [Suspect]
     Indication: SCLERODERMA
  5. REVATIO [Suspect]
     Indication: SKIN ULCER

REACTIONS (4)
  - BLOOD CREATININE INCREASED [None]
  - BLOOD PRESSURE INCREASED [None]
  - PERIPHERAL VASCULAR DISORDER [None]
  - DIABETES MELLITUS [None]
